FAERS Safety Report 8610616 (Version 5)
Quarter: 2012Q4

REPORT INFORMATION
  Report Type: Report from Study
  Country: DE (occurrence: DE)
  Receive Date: 20120612
  Receipt Date: 20120911
  Transmission Date: 20130627
  Serious: Yes (Hospitalization)
  Sender: FDA-Public Use
  Company Number: DE-ROCHE-1074689

PATIENT
  Age: 77 Year
  Sex: Female
  Weight: 57 kg

DRUGS (7)
  1. XELODA [Suspect]
     Indication: BREAST CANCER
     Dosage: Last dose prior to SAE 31 May 2012
     Route: 048
     Dates: start: 20120430, end: 20120603
  2. VINORELBINE TARTRATE [Suspect]
     Indication: BREAST CANCER
     Dosage: Last dose prior to SAE  21 May/2012
     Route: 042
     Dates: start: 20120430, end: 20120521
  3. AVASTIN [Suspect]
     Indication: BREAST CANCER
     Dosage: last dose prior to sae 13/Jun/2012
     Route: 042
     Dates: start: 20120430
  4. FUROSEMIDE [Concomitant]
     Dosage: 1-0-0
     Route: 065
  5. AMLODIPINE [Concomitant]
     Dosage: 0-0-1/2
     Route: 065
  6. NOVALGIN [Concomitant]
     Dosage: 3x30 tsopf
     Route: 065
  7. AMITRIPTYLINE [Concomitant]

REACTIONS (5)
  - General physical health deterioration [Recovered/Resolved]
  - Decreased appetite [Recovered/Resolved with Sequelae]
  - Dyspnoea [Recovered/Resolved]
  - Asthenia [Recovered/Resolved]
  - Fatigue [Recovered/Resolved with Sequelae]
